FAERS Safety Report 8991476 (Version 3)
Quarter: 2013Q2

REPORT INFORMATION
  Report Type: Spontaneous
  Country: AT (occurrence: AT)
  Receive Date: 20121231
  Receipt Date: 20130408
  Transmission Date: 20140414
  Serious: Yes (Other)
  Sender: FDA-Public Use
  Company Number: AT-BIOGENIDEC-2012BI064233

PATIENT
  Age: 44 Year
  Sex: Female

DRUGS (5)
  1. TYSABRI [Suspect]
     Indication: MULTIPLE SCLEROSIS
     Route: 042
     Dates: start: 20081021, end: 20110518
  2. TYSABRI [Suspect]
     Indication: MULTIPLE SCLEROSIS
     Route: 042
     Dates: start: 20110819, end: 20111012
  3. GILENYA [Concomitant]
     Indication: MULTIPLE SCLEROSIS
     Route: 048
     Dates: start: 20120118, end: 20120622
  4. TRESLEEN [Concomitant]
     Dates: start: 20100714
  5. VIROSTATIC THERAPY (ACTIVE SUBSTANCE UNKNOWN) [Concomitant]
     Indication: HERPES SIMPLEX
     Dates: start: 2011

REACTIONS (4)
  - Breast cancer [Not Recovered/Not Resolved]
  - Neutropenia [Recovered/Resolved]
  - Salivary gland adenoma [Recovered/Resolved]
  - Herpes simplex [Recovered/Resolved]
